FAERS Safety Report 22743427 (Version 4)
Quarter: 2025Q3

REPORT INFORMATION
  Report Type: Spontaneous
  Country: US (occurrence: US)
  Receive Date: 20230724
  Receipt Date: 20250822
  Transmission Date: 20251020
  Serious: No
  Sender: SANOFI AVENTIS
  Company Number: US-SA-SAC20230719000658

PATIENT
  Age: 50 Year
  Sex: Male

DRUGS (1)
  1. FABRAZYME [Suspect]
     Active Substance: AGALSIDASE BETA
     Route: 065

REACTIONS (3)
  - Globotriaosylsphingosine increased [Recovering/Resolving]
  - Drug specific antibody present [Recovering/Resolving]
  - Neutralising antibodies positive [Recovering/Resolving]

NARRATIVE: CASE EVENT DATE: 20221229
